FAERS Safety Report 18457765 (Version 1)
Quarter: 2020Q4

REPORT INFORMATION
  Report Type: Spontaneous
  Country: US (occurrence: US)
  Receive Date: 20201102
  Receipt Date: 20201102
  Transmission Date: 20210114
  Serious: Yes (Hospitalization)
  Sender: FDA-Public Use
  Company Number: None

PATIENT
  Age: 65 Year
  Sex: Male
  Weight: 98.9 kg

DRUGS (1)
  1. VANCOMYCIN [Suspect]
     Active Substance: VANCOMYCIN
     Indication: POST PROCEDURAL INFECTION
     Route: 042
     Dates: start: 20201018, end: 20201027

REACTIONS (4)
  - Anaphylactic reaction [None]
  - Blood creatinine increased [None]
  - Swelling [None]
  - Dyspnoea [None]

NARRATIVE: CASE EVENT DATE: 20201027
